FAERS Safety Report 9683182 (Version 1)
Quarter: 2013Q4

REPORT INFORMATION
  Report Type: Spontaneous
  Country: US (occurrence: None)
  Receive Date: 20131111
  Receipt Date: 20131111
  Transmission Date: 20140711
  Serious: Yes (Life-Threatening, Hospitalization)
  Sender: FDA-Public Use
  Company Number: None

PATIENT
  Age: 62 Year
  Sex: Male
  Weight: 87.54 kg

DRUGS (3)
  1. AMOXICILLIN CLAVULANATE [Suspect]
     Indication: SINUSITIS
     Route: 048
     Dates: start: 20130916, end: 20131023
  2. LOVASTATIN [Concomitant]
  3. QUINIPRIL [Concomitant]

REACTIONS (1)
  - Drug-induced liver injury [None]
